FAERS Safety Report 18600962 (Version 1)
Quarter: 2020Q4

REPORT INFORMATION
  Report Type: Spontaneous
  Country: US (occurrence: US)
  Receive Date: 20201210
  Receipt Date: 20201210
  Transmission Date: 20210114
  Serious: Yes (Other)
  Sender: FDA-Public Use
  Company Number: US-PFIZER INC-2020485219

PATIENT
  Age: 59 Year
  Sex: Female

DRUGS (1)
  1. CHANTIX [Suspect]
     Active Substance: VARENICLINE TARTRATE
     Indication: TOBACCO USER
     Dosage: 1 MG, DAILY

REACTIONS (2)
  - Lung neoplasm malignant [Unknown]
  - Lung cancer metastatic [Unknown]

NARRATIVE: CASE EVENT DATE: 202006
